FAERS Safety Report 9641849 (Version 2)
Quarter: 2013Q4

REPORT INFORMATION
  Report Type: Spontaneous
  Country: US (occurrence: US)
  Receive Date: 20131023
  Receipt Date: 20131206
  Transmission Date: 20140711
  Serious: No
  Sender: FDA-Public Use
  Company Number: US-BAYER-2013-124149

PATIENT
  Age: 35 Year
  Sex: Male
  Weight: 74.83 kg

DRUGS (1)
  1. XOFIGO [Suspect]
     Dosage: UNK
     Dates: start: 20131010

REACTIONS (1)
  - Occupational exposure to product [None]
